FAERS Safety Report 9837596 (Version 1)
Quarter: 2014Q1

REPORT INFORMATION
  Report Type: Spontaneous
  Country: US (occurrence: None)
  Receive Date: 20140117
  Receipt Date: 20140117
  Transmission Date: 20141002
  Serious: Yes (Other)
  Sender: FDA-Public Use
  Company Number: None

PATIENT
  Age: 52 Year
  Sex: 0

DRUGS (1)
  1. MODAFINIL [Suspect]
     Indication: SLEEP APNOEA SYNDROME
     Dosage: 1 200 MG AM   SEE ABOVE  TAKEN BY MOUTH?100-200 NOON
     Route: 048

REACTIONS (2)
  - Product substitution issue [None]
  - Drug effect decreased [None]
